FAERS Safety Report 5570438-8 (Version None)
Quarter: 2007Q4

REPORT INFORMATION
  Report Type: 
  Country: None (occurrence: None)
  Receive Date: 20071221
  Receipt Date: 20071210
  Transmission Date: 20080405
  Serious: Yes (Other)
  Sender: FDA-Public Use
  Company Number: FR-BAYER-200718277GPV

PATIENT
  Age: 42 Year
  Sex: Female

DRUGS (1)
  1. MIRENA [Suspect]
     Indication: CONTRACEPTION
     Dosage: TOTAL DAILY DOSE: 20 ?G  UNIT DOSE: 20 ?G
     Route: 015
     Dates: start: 20071112, end: 20071207

REACTIONS (3)
  - INTRA-UTERINE CONTRACEPTIVE DEVICE EXPELLED [None]
  - METRORRHAGIA [None]
  - UTERINE LEIOMYOMA [None]
